FAERS Safety Report 8101065-6 (Version None)
Quarter: 2012Q1

REPORT INFORMATION
  Report Type: 
  Country: None (occurrence: None)
  Receive Date: 20120129
  Receipt Date: 20110907
  Transmission Date: 20120608
  Serious: No
  Sender: FDA-Public Use
  Company Number: US-ABBOTT-11P-163-0852736-00

PATIENT
  Sex: Female
  Weight: 112.14 kg

DRUGS (10)
  1. PENTASA [Concomitant]
     Indication: PRODUCT USED FOR UNKNOWN INDICATION
  2. HUMIRA [Suspect]
     Dates: start: 20100701
  3. PROTONIX [Concomitant]
     Indication: CROHN'S DISEASE
  4. FLAGYL [Concomitant]
     Indication: CROHN'S DISEASE
  5. HUMIRA [Suspect]
     Indication: CROHN'S DISEASE
     Dates: start: 20080101, end: 20090101
  6. ZYRTEC [Concomitant]
     Indication: HYPERSENSITIVITY
     Dosage: DAILY
  7. AZASAN [Concomitant]
     Indication: CROHN'S DISEASE
     Dosage: DAILY
  8. PHENERGAN [Concomitant]
     Indication: NAUSEA
  9. LEXAPRO [Concomitant]
     Indication: PRODUCT USED FOR UNKNOWN INDICATION
     Dosage: DAILY
  10. VITAMIN B-12 [Concomitant]
     Indication: VITAMIN SUPPLEMENTATION

REACTIONS (8)
  - NAUSEA [None]
  - SLEEP DISORDER [None]
  - HEADACHE [None]
  - FATIGUE [None]
  - MUSCLE SPASMS [None]
  - PARAESTHESIA [None]
  - GASTROINTESTINAL PAIN [None]
  - ABDOMINAL PAIN UPPER [None]
